FAERS Safety Report 7610901-9 (Version None)
Quarter: 2011Q3

REPORT INFORMATION
  Report Type: 
  Country: None (occurrence: None)
  Receive Date: 20110715
  Receipt Date: 20110706
  Transmission Date: 20111222
  Serious: Yes (Death, Other)
  Sender: FDA-Public Use
  Company Number: JP-BRISTOL-MYERS SQUIBB COMPANY-15651169

PATIENT
  Age: 61 Year
  Sex: Female

DRUGS (12)
  1. MICARDIS [Concomitant]
     Indication: HYPERTENSION
  2. ACTONEL [Concomitant]
     Indication: OSTEOPOROSIS
  3. LIVALO [Concomitant]
     Indication: HYPERLIPIDAEMIA
  4. FOLIC ACID [Concomitant]
  5. ISOSORBIDE DINITRATE [Concomitant]
     Indication: ANGINA PECTORIS
  6. SIGMART [Concomitant]
     Indication: ANGINA PECTORIS
  7. FRANDOL TAPE S [Concomitant]
     Indication: ANGINA PECTORIS
  8. BETAMETHASONE [Concomitant]
     Dosage: 16MG/DAY(15MAR2011-16MAR2011 8MG/DAY(17MAR2011-ONGOING
     Route: 048
     Dates: start: 20110315
  9. ORENCIA [Suspect]
     Indication: RHEUMATOID ARTHRITIS
     Dosage: 27NOV,11DEC10,8JAN,12FEB,12MAR11 LAST DOSE ON 12MAR2011
     Route: 041
     Dates: start: 20101113
  10. METHOTREXATE [Concomitant]
     Dates: end: 20110328
  11. PREDNISONE [Concomitant]
     Dosage: 3 MONTHS BEFORE STARTED-
     Route: 048
     Dates: end: 20110328
  12. SOLU-MEDROL [Concomitant]
     Route: 048
     Dates: start: 20110313, end: 20110314

REACTIONS (7)
  - CYTOMEGALOVIRUS CHORIORETINITIS [None]
  - BLOOD SODIUM DECREASED [None]
  - FUNGAL INFECTION [None]
  - ACUTE DISSEMINATED ENCEPHALOMYELITIS [None]
  - WHITE BLOOD CELL COUNT INCREASED [None]
  - DISLOCATION OF VERTEBRA [None]
  - C-REACTIVE PROTEIN INCREASED [None]
